FAERS Safety Report 4677568-3 (Version None)
Quarter: 2005Q2

REPORT INFORMATION
  Report Type: 
  Country: None (occurrence: None)
  Receive Date: 20050526
  Receipt Date: 20050526
  Transmission Date: 20051028
  Serious: No
  Sender: FDA-Public Use
  Company Number: None

PATIENT
  Age: 85 Year
  Sex: Male
  Weight: 70.3075 kg

DRUGS (5)
  1. ASPIRIN [Suspect]
     Indication: ARTHRITIS
     Dosage: 325 MG DAILY
  2. FELODIPINE [Concomitant]
  3. GOODY'S POWDER [Concomitant]
  4. RANITIDINE [Concomitant]
  5. SERTRALINE HCL [Concomitant]

REACTIONS (6)
  - ABDOMINAL PAIN [None]
  - ALCOHOL USE [None]
  - ASTHENIA [None]
  - FAECES DISCOLOURED [None]
  - HAEMATEMESIS [None]
  - SELF-MEDICATION [None]
